FAERS Safety Report 24324413 (Version 1)
Quarter: 2024Q3

REPORT INFORMATION
  Report Type: Spontaneous
  Country: PL (occurrence: PL)
  Receive Date: 20240916
  Receipt Date: 20240916
  Transmission Date: 20241017
  Serious: Yes (Death)
  Sender: AMGEN
  Company Number: PL-AMGEN-POLSP2024182348

PATIENT
  Age: 52 Year
  Sex: Male

DRUGS (1)
  1. REPATHA [Suspect]
     Active Substance: EVOLOCUMAB
     Indication: Product used for unknown indication
     Dosage: UNK
     Route: 065
     Dates: start: 2021

REACTIONS (1)
  - Lung neoplasm malignant [Fatal]
